FAERS Safety Report 4356408-6 (Version None)
Quarter: 2004Q2

REPORT INFORMATION
  Report Type: 
  Country: None (occurrence: None)
  Receive Date: 20040511
  Receipt Date: 20040511
  Transmission Date: 20050107
  Serious: Yes (Other)
  Sender: FDA-Public Use
  Company Number: None

PATIENT
  Age: 57 Year
  Sex: Male
  Weight: 113.3993 kg

DRUGS (7)
  1. GLIPIZIDE [Suspect]
     Indication: DIABETES MELLITUS
     Dosage: 1 DAILY ORAL
     Route: 048
     Dates: start: 20040427, end: 20040509
  2. GLIPIZIDE [Suspect]
     Indication: DIABETES MELLITUS
     Dosage: 1 DAILY ORAL
     Route: 048
     Dates: start: 20040427, end: 20040509
  3. XELODA [Concomitant]
  4. ATACAND [Concomitant]
  5. ACTPS [Concomitant]
  6. METFORMIN HCL [Concomitant]
  7. PRAVACHOL [Concomitant]

REACTIONS (2)
  - OEDEMA PERIPHERAL [None]
  - PHARMACEUTICAL PRODUCT COMPLAINT [None]
